FAERS Safety Report 21935030 (Version 2)
Quarter: 2023Q1

REPORT INFORMATION
  Report Type: Spontaneous
  Country: JP (occurrence: JP)
  Receive Date: 20230201
  Receipt Date: 20230210
  Transmission Date: 20230417
  Serious: Yes (Death, Other)
  Sender: FDA-Public Use
  Company Number: JP-GILEAD-2022-0609241

PATIENT
  Age: 94 Year
  Sex: Female
  Weight: 38 kg

DRUGS (10)
  1. VEKLURY [Suspect]
     Active Substance: REMDESIVIR
     Indication: COVID-19
     Dosage: 200 MG, QD
     Route: 041
     Dates: start: 20221203, end: 20221203
  2. VEKLURY [Suspect]
     Active Substance: REMDESIVIR
     Dosage: 100 MG, QD
     Route: 041
     Dates: start: 20221204, end: 20221207
  3. LASIX [Concomitant]
     Active Substance: FUROSEMIDE
     Indication: Cardiac failure congestive
     Dosage: 20 MG, BID
     Route: 041
     Dates: start: 20221110
  4. NEXIUM [Concomitant]
     Active Substance: ESOMEPRAZOLE MAGNESIUM
     Indication: Gastrooesophageal reflux disease
     Dosage: 20 MG, QD
     Route: 048
  5. CARVEDILOL [Concomitant]
     Active Substance: CARVEDILOL
     Indication: Cardiac failure chronic
     Dosage: 2.5 MG, BID
  6. PROPIVERINE [Concomitant]
     Active Substance: PROPIVERINE
     Indication: Pollakiuria
     Dosage: 10 MG, QD
  7. MAGNESIUM OXIDE [Concomitant]
     Active Substance: MAGNESIUM OXIDE
     Indication: Constipation
     Dosage: 500 MG, BID
     Dates: start: 20221112
  8. TIAPRIDE HYDROCHLORIDE [Concomitant]
     Active Substance: TIAPRIDE HYDROCHLORIDE
     Indication: Delirium
     Dosage: 25 MG, QD
     Dates: start: 20221113
  9. RISPERDAL [Concomitant]
     Active Substance: RISPERIDONE
     Indication: Delirium
     Dosage: 1 MG, QD
     Dates: start: 20221113
  10. AMLODIPINE BESYLATE [Concomitant]
     Active Substance: AMLODIPINE BESYLATE
     Indication: Hypertension
     Dosage: 2.5 MG, BID
     Dates: start: 20221120

REACTIONS (2)
  - Liver function test increased [Recovering/Resolving]
  - Cardiac failure congestive [Fatal]

NARRATIVE: CASE EVENT DATE: 20221208
